FAERS Safety Report 6652384-1 (Version None)
Quarter: 2010Q1

REPORT INFORMATION
  Report Type: 
  Country: None (occurrence: None)
  Receive Date: 20100325
  Receipt Date: 20100315
  Transmission Date: 20100710
  Serious: Yes (Hospitalization, Other)
  Sender: FDA-Public Use
  Company Number: DE-ABBOTT-10P-062-0632382-00

PATIENT
  Age: 39 Year
  Sex: Female
  Weight: 75 kg

DRUGS (4)
  1. AKINETON [Suspect]
     Indication: DRUG USE FOR UNKNOWN INDICATION
     Route: 048
     Dates: start: 20091207, end: 20091212
  2. HALDOL-JANSSEN [Suspect]
     Indication: DRUG USE FOR UNKNOWN INDICATION
     Dosage: 2.5 - 7.5 MG DAILY PER OS
     Route: 048
     Dates: start: 20091117, end: 20091210
  3. DIPIPERON [Suspect]
     Indication: DRUG USE FOR UNKNOWN INDICATION
     Dosage: 20-40 MG PER DAY
     Dates: start: 20091116, end: 20091205
  4. CLOZAPINE [Concomitant]
     Indication: SCHIZOPHRENIA
     Dosage: 25-275 MG DAILY PER OS
     Dates: start: 20091117

REACTIONS (1)
  - HEPATITIS ACUTE [None]
